FAERS Safety Report 15653944 (Version 1)
Quarter: 2018Q4

REPORT INFORMATION
  Report Type: Spontaneous
  Country: US (occurrence: US)
  Receive Date: 20181125
  Receipt Date: 20181125
  Transmission Date: 20190205
  Serious: No
  Sender: FDA-Public Use
  Company Number: US-JNJFOC-20181108535

PATIENT
  Sex: Male

DRUGS (12)
  1. JANUVIA [Concomitant]
     Active Substance: SITAGLIPTIN PHOSPHATE
     Route: 065
  2. HYDROCHLORTHIAZID [Concomitant]
     Active Substance: HYDROCHLOROTHIAZIDE
     Route: 065
  3. BICALUTAMIDE. [Concomitant]
     Active Substance: BICALUTAMIDE
     Route: 065
  4. VITAMINE C [Concomitant]
     Active Substance: ASCORBIC ACID
     Route: 065
  5. ZYTIGA [Suspect]
     Active Substance: ABIRATERONE ACETATE
     Indication: PROSTATE CANCER
     Route: 048
     Dates: start: 20180816, end: 2018
  6. LOSARTAN. [Concomitant]
     Active Substance: LOSARTAN
     Route: 065
  7. GABAPENTIN. [Concomitant]
     Active Substance: GABAPENTIN
     Route: 065
  8. POTASSIUM [Concomitant]
     Active Substance: POTASSIUM
     Route: 065
  9. CALCIUM D3 [Concomitant]
     Active Substance: CALCIUM\CHOLECALCIFEROL
     Route: 065
  10. TAMSULOSIN [Concomitant]
     Active Substance: TAMSULOSIN
     Route: 065
  11. XGEVA [Concomitant]
     Active Substance: DENOSUMAB
     Route: 065
  12. METOPROLOL. [Concomitant]
     Active Substance: METOPROLOL
     Route: 065

REACTIONS (1)
  - Blood potassium decreased [Unknown]

NARRATIVE: CASE EVENT DATE: 2018
